FAERS Safety Report 6748718-X (Version None)
Quarter: 2010Q2

REPORT INFORMATION
  Report Type: 
  Country: None (occurrence: None)
  Receive Date: 20100601
  Receipt Date: 20100518
  Transmission Date: 20101027
  Serious: Yes (Congenital Anomaly, Other)
  Sender: FDA-Public Use
  Company Number: PHHY2010NO32407

PATIENT
  Sex: Male

DRUGS (5)
  1. METOPROLOL TARTRATE [Suspect]
     Route: 064
  2. CANDESARTAN [Concomitant]
     Route: 064
  3. ASPIRIN [Concomitant]
     Route: 064
  4. BETAMETHASONE [Concomitant]
     Route: 064
  5. ATOSIBAN [Concomitant]
     Route: 064

REACTIONS (7)
  - CARDIAC MURMUR [None]
  - DRUG EXPOSURE DURING PREGNANCY [None]
  - FOETAL GROWTH RETARDATION [None]
  - KIDNEY ENLARGEMENT [None]
  - PATENT DUCTUS ARTERIOSUS [None]
  - PREMATURE BABY [None]
  - RENAL FAILURE ACUTE [None]
